FAERS Safety Report 8445431-8 (Version None)
Quarter: 2012Q2

REPORT INFORMATION
  Report Type: 
  Country: None (occurrence: None)
  Receive Date: 20120618
  Receipt Date: 20120222
  Transmission Date: 20120825
  Serious: No
  Sender: FDA-Public Use
  Company Number: US-TEVA-324168USA

PATIENT
  Sex: Female
  Weight: 65.83 kg

DRUGS (4)
  1. DEXILANT [Concomitant]
     Indication: GASTROOESOPHAGEAL REFLUX DISEASE
     Dosage: QD
     Route: 048
  2. OXYCODONE HCL [Concomitant]
     Indication: BACK DISORDER
     Dosage: 1-2/DAY, NOT EVERY DAY
     Route: 048
  3. SERTRALINE HYDROCHLORIDE [Concomitant]
     Indication: DEPRESSION
     Dosage: QD
     Route: 048
  4. FENTORA [Suspect]
     Indication: HEADACHE
     Route: 002
     Dates: start: 20110823

REACTIONS (3)
  - DRUG PRESCRIBING ERROR [None]
  - INCORRECT ROUTE OF DRUG ADMINISTRATION [None]
  - HEADACHE [None]
